FAERS Safety Report 5874174-X (Version None)
Quarter: 2008Q3

REPORT INFORMATION
  Report Type: 
  Country: None (occurrence: None)
  Receive Date: 20080903
  Receipt Date: 20080827
  Transmission Date: 20090109
  Serious: Yes (Death)
  Sender: FDA-Public Use
  Company Number: 2008-182839-NL

PATIENT

DRUGS (2)
  1. VECURONIUM BROMIDE [Suspect]
  2. PROPOFOL [Suspect]

REACTIONS (1)
  - DRUG TOXICITY [None]
